FAERS Safety Report 18087941 (Version 1)
Quarter: 2020Q3

REPORT INFORMATION
  Report Type: Spontaneous
  Country: US (occurrence: US)
  Receive Date: 20200729
  Receipt Date: 20200729
  Transmission Date: 20201103
  Serious: Yes (Disabling, Other)
  Sender: FDA-Public Use
  Company Number: US-PURDUE-USA-2020-0159771

PATIENT
  Sex: Male

DRUGS (2)
  1. OXYCODONE HCL CR TABLETS (SIMILAR TO NDA 22?272) [Suspect]
     Active Substance: OXYCODONE HYDROCHLORIDE
     Indication: PRODUCT USED FOR UNKNOWN INDICATION
     Route: 065
  2. OXYCONTIN [Suspect]
     Active Substance: OXYCODONE HYDROCHLORIDE
     Indication: BACK PAIN
     Route: 048

REACTIONS (8)
  - Self-injurious ideation [Unknown]
  - Drug dependence [Unknown]
  - Syncope [Unknown]
  - Crime [Unknown]
  - Suicide attempt [Unknown]
  - Aggression [Unknown]
  - Imprisonment [Unknown]
  - Bankruptcy [Unknown]

NARRATIVE: CASE EVENT DATE: 20081027
